FAERS Safety Report 10168746 (Version 1)
Quarter: 2014Q2

REPORT INFORMATION
  Report Type: Spontaneous
  Country: US (occurrence: None)
  Receive Date: 20140509
  Receipt Date: 20140509
  Transmission Date: 20141212
  Serious: Yes (Other)
  Sender: FDA-Public Use
  Company Number: A1072403A

PATIENT
  Age: 73 Year
  Sex: Male

DRUGS (1)
  1. SODIUM MONOFLUOROPHOSPHATE [Suspect]
     Indication: DENTAL CARE
     Route: 004
     Dates: start: 20140506, end: 20140506

REACTIONS (6)
  - Cardiac disorder [None]
  - Pain [None]
  - Abdominal discomfort [None]
  - Flatulence [None]
  - Abdominal pain upper [None]
  - Chest pain [None]
